FAERS Safety Report 5927152-6 (Version None)
Quarter: 2008Q4

REPORT INFORMATION
  Report Type: 
  Country: None (occurrence: None)
  Receive Date: 20081022
  Receipt Date: 20081014
  Transmission Date: 20090506
  Serious: Yes (Disabling, Other)
  Sender: FDA-Public Use
  Company Number: GR-PFIZER INC-2007053855

PATIENT
  Age: 61 Year
  Sex: Male

DRUGS (8)
  1. XALATAN [Suspect]
     Indication: GLAUCOMA
     Route: 047
     Dates: start: 20050201, end: 20060622
  2. AZOPT [Suspect]
     Route: 047
     Dates: start: 20060101
  3. ALPHAGAN [Suspect]
     Route: 047
     Dates: start: 20060101
  4. COSOPT [Suspect]
  5. VASTAREL [Concomitant]
     Indication: HYPERTENSION
     Dates: start: 19970101
  6. VITAMIN E [Concomitant]
     Dates: start: 19970101
  7. ACETYLSALICYLIC ACID SRT [Concomitant]
     Indication: THALASSAEMIA TRAIT
     Dates: start: 19970101
  8. CENTRUM [Concomitant]
     Dates: start: 19970101

REACTIONS (6)
  - HYPERSENSITIVITY [None]
  - MACULAR HOLE [None]
  - MACULAR OEDEMA [None]
  - MENTAL DISORDER [None]
  - VISUAL ACUITY REDUCED [None]
  - VISUAL IMPAIRMENT [None]
